FAERS Safety Report 11494782 (Version 2)
Quarter: 2015Q3

REPORT INFORMATION
  Report Type: Spontaneous
  Country: US (occurrence: US)
  Receive Date: 20150911
  Receipt Date: 20150922
  Transmission Date: 20151125
  Serious: Yes (Other)
  Sender: FDA-Public Use
  Company Number: US-AMGEN-USASP2015093108

PATIENT
  Age: 71 Year
  Sex: Female
  Weight: 73.5 kg

DRUGS (18)
  1. GEMZAR [Concomitant]
     Active Substance: GEMCITABINE HYDROCHLORIDE
     Indication: TRANSITIONAL CELL CARCINOMA
     Dosage: 1740 MG, ONCE
     Route: 042
     Dates: start: 20150903, end: 20150903
  2. GEMZAR [Concomitant]
     Active Substance: GEMCITABINE HYDROCHLORIDE
     Indication: RENAL CANCER
  3. ALOXI [Concomitant]
     Active Substance: PALONOSETRON HYDROCHLORIDE
     Indication: PREMEDICATION
     Dosage: 0.25 MG, ONCE
     Route: 042
     Dates: start: 20150903, end: 20150903
  4. NOVOLOG [Concomitant]
     Active Substance: INSULIN ASPART
     Dosage: USE AS DIRECTED. MAX DAILY DOSE: 100 UNITS
     Dates: start: 20150507
  5. EMLA [Concomitant]
     Active Substance: LIDOCAINE\PRILOCAINE
     Dosage: APPLY TO INFUSAPORT AN HOUR BEFORE ARCESSING
     Dates: start: 20150820
  6. CARAFATE [Concomitant]
     Active Substance: SUCRALFATE
     Dosage: TAKE 10 MLS BY MOUTH FOUR TIMES DAILY.
     Route: 048
     Dates: start: 20150828
  7. NEULASTA [Suspect]
     Active Substance: PEGFILGRASTIM
     Indication: LEUKOPENIA
     Dosage: 6 MG, ONCE
     Route: 058
     Dates: start: 20150903, end: 20150904
  8. CISPLATIN. [Concomitant]
     Active Substance: CISPLATIN
     Indication: TRANSITIONAL CELL CARCINOMA
  9. CRESTOR [Concomitant]
     Active Substance: ROSUVASTATIN CALCIUM
     Dosage: UNK UNK, TAKE 1 TABLET BY MOUTH EVERY DAY
     Route: 048
     Dates: start: 20131113
  10. ATIVAN [Concomitant]
     Active Substance: LORAZEPAM
     Indication: PREMEDICATION
     Dosage: 0.5 MG, ONCE
     Route: 042
     Dates: start: 20150903, end: 20150903
  11. PRILOSEC [Concomitant]
     Active Substance: OMEPRAZOLE MAGNESIUM
     Dosage: TAKE TWO CAPSULES BY MOUTH TWICE DAILY, TAKE BEFORE MEALS
     Route: 048
     Dates: start: 20150908
  12. CALCIUM CARBONATE W/VITAMIN D      /00944201/ [Concomitant]
     Dosage: 600-400 MG, TAKE 1 TABLET BY MOUTH DAILY.
     Route: 048
     Dates: start: 20150116
  13. CISPLATIN. [Concomitant]
     Active Substance: CISPLATIN
     Indication: RENAL CANCER
     Dosage: 44 MG, ONCE
     Route: 042
     Dates: start: 20150903, end: 20150903
  14. DECADRON [Concomitant]
     Active Substance: DEXAMETHASONE
     Indication: PREMEDICATION
     Dosage: 12 MG, ONCE
     Route: 042
     Dates: start: 20150903, end: 20150903
  15. SYNTHROID [Concomitant]
     Active Substance: LEVOTHYROXINE SODIUM
     Dosage: TAKE 1 TABLET BY MOUTH DAILY
     Route: 048
     Dates: start: 20150508
  16. ZOFRAN [Concomitant]
     Active Substance: ONDANSETRON HYDROCHLORIDE
     Indication: NAUSEA
     Dosage: TAKE 2 TABLETS BY MOUTH EVERY 8 (EIGHT) HOURS AS NOEDED FOR NAUSEA.
     Route: 048
     Dates: start: 20150820
  17. COMPAZINE [Concomitant]
     Active Substance: PROCHLORPERAZINE MALEATE
     Indication: NAUSEA
     Dosage: TAKO 1 TABLET BY MOUTH EVERY 6 (SIX) HOURS AS NEEDED
     Route: 048
     Dates: start: 20150820
  18. COMPAZINE [Concomitant]
     Active Substance: PROCHLORPERAZINE MALEATE
     Indication: VOMITING

REACTIONS (3)
  - Device dislocation [Recovered/Resolved]
  - Fall [Recovered/Resolved]
  - Dizziness [Recovered/Resolved]

NARRATIVE: CASE EVENT DATE: 20150903
